FAERS Safety Report 24966352 (Version 2)
Quarter: 2025Q2

REPORT INFORMATION
  Report Type: Spontaneous
  Country: BR (occurrence: BR)
  Receive Date: 20250213
  Receipt Date: 20250403
  Transmission Date: 20250717
  Serious: Yes (Hospitalization)
  Sender: TAIHO ONCOLOGY INC
  Company Number: BR-SERVIER-S25001416

PATIENT
  Sex: Male
  Weight: 91 kg

DRUGS (2)
  1. LONSURF [Suspect]
     Active Substance: TIPIRACIL HYDROCHLORIDE\TRIFLURIDINE
     Indication: Hepatic cancer
     Dosage: 130 MG DAILY (2 TABLETS 20 MG AND 6 TABLETS 15 MG), ON D1-5, D8-12 OF EACH 28-DAY CYCLE
     Route: 048
     Dates: start: 202408
  2. LONSURF [Suspect]
     Active Substance: TIPIRACIL HYDROCHLORIDE\TRIFLURIDINE
     Indication: Gastrointestinal carcinoma
     Dosage: 130 MG DAILY (2 TABLETS 20 MG AND 6 TABLETS 15 MG), ON D1-5, D8-12 OF EACH 28-DAY CYCLE
     Route: 048
     Dates: start: 202408

REACTIONS (1)
  - Immunodeficiency [Recovered/Resolved]

NARRATIVE: CASE EVENT DATE: 20250101
